FAERS Safety Report 7042069-4 (Version None)
Quarter: 2010Q4

REPORT INFORMATION
  Report Type: 
  Country: None (occurrence: None)
  Receive Date: 20101013
  Receipt Date: 20091223
  Transmission Date: 20110411
  Serious: Yes (Other)
  Sender: FDA-Public Use
  Company Number: US-ASTRAZENECA-2009SE29990

PATIENT
  Age: 45 Year
  Sex: Female
  Weight: 139.7 kg

DRUGS (16)
  1. SYMBICORT [Suspect]
     Indication: ASTHMA
     Dosage: 80 TWO PUFFS
     Route: 055
     Dates: start: 20091119, end: 20091123
  2. PRILOSEC [Concomitant]
     Dosage: QHS
     Route: 048
  3. PROVENTIL [Concomitant]
     Dosage: PRN
  4. ALLEGRA D 24 HOUR [Concomitant]
     Dosage: EVERY MORNING
  5. SINGULAIR [Concomitant]
  6. ALBUTEROL [Concomitant]
  7. KAPIDEX [Concomitant]
  8. PREDNISONE [Concomitant]
     Dates: start: 20091101
  9. NAPROSYN [Concomitant]
  10. TOPAMAX [Concomitant]
  11. LORAZEPAM [Concomitant]
  12. CYMBALTA [Concomitant]
  13. ASPIRIN [Concomitant]
  14. CALCIUM [Concomitant]
     Dosage: QD
  15. LOVAZA [Concomitant]
     Dosage: 3 QD
  16. PRENATAL VITS [Concomitant]

REACTIONS (3)
  - CHEST DISCOMFORT [None]
  - COUGH [None]
  - DYSPNOEA [None]
